FAERS Safety Report 6730085-9 (Version None)
Quarter: 2010Q2

REPORT INFORMATION
  Report Type: 
  Country: None (occurrence: None)
  Receive Date: 20100512
  Receipt Date: 20100317
  Transmission Date: 20101027
  Serious: No
  Sender: FDA-Public Use
  Company Number: 1000012547

PATIENT
  Age: 51 Year
  Sex: Female

DRUGS (13)
  1. SAVELLA [Suspect]
     Indication: FIBROMYALGIA
     Dosage: 1SEE IMAGE
     Route: 048
     Dates: start: 20100201, end: 20100201
  2. SAVELLA [Suspect]
     Indication: FIBROMYALGIA
     Dosage: 1SEE IMAGE
     Route: 048
     Dates: start: 20100201, end: 20100201
  3. SAVELLA [Suspect]
     Indication: FIBROMYALGIA
     Dosage: 1SEE IMAGE
     Route: 048
     Dates: start: 20100201, end: 20100201
  4. SAVELLA [Suspect]
     Indication: FIBROMYALGIA
     Dosage: 1SEE IMAGE
     Route: 048
     Dates: start: 20100201
  5. EFFEXOR [Concomitant]
  6. BUPROPION HCL [Concomitant]
  7. ABILIFY [Concomitant]
  8. LORAZEPAM [Concomitant]
  9. BACLOFEN [Concomitant]
  10. NEXIUM [Concomitant]
  11. INVEGA [Concomitant]
  12. VYVANSE [Concomitant]
  13. GABAPENTIN [Concomitant]

REACTIONS (4)
  - AMNESIA [None]
  - BALANCE DISORDER [None]
  - MENTAL IMPAIRMENT [None]
  - VISUAL IMPAIRMENT [None]
